FAERS Safety Report 5514143-2 (Version None)
Quarter: 2007Q4

REPORT INFORMATION
  Report Type: 
  Country: None (occurrence: None)
  Receive Date: 20071106
  Receipt Date: 20070105
  Transmission Date: 20080405
  Serious: Yes (Other)
  Sender: FDA-Public Use
  Company Number: US200701001291

PATIENT
  Age: 41 Year
  Sex: Female

DRUGS (2)
  1. PROZAC [Suspect]
     Indication: ANXIETY
     Dosage: 40 MG
     Dates: start: 20061101
  2. XANAX /USA/ (ALPRAZOLAM) [Concomitant]

REACTIONS (1)
  - SELF MUTILATION [None]
